FAERS Safety Report 9240038 (Version 1)
Quarter: 2013Q2

REPORT INFORMATION
  Report Type: Spontaneous
  Country: AU (occurrence: AU)
  Receive Date: 20130418
  Receipt Date: 20130418
  Transmission Date: 20140414
  Serious: Yes (Hospitalization)
  Sender: FDA-Public Use
  Company Number: AU-MYLANLABS-2013S1007688

PATIENT
  Age: 53 Year
  Sex: Female

DRUGS (3)
  1. SODIUM VALPROATE [Suspect]
     Indication: SCHIZOAFFECTIVE DISORDER
     Dosage: INITIAL DOSAGE NOT STATED
     Route: 065
  2. QUETIAPINE [Suspect]
     Indication: SCHIZOAFFECTIVE DISORDER
     Route: 065
  3. LEVOTHYROXINE SODIUM [Concomitant]
     Route: 065

REACTIONS (2)
  - Hyperammonaemic encephalopathy [Unknown]
  - Overdose [Unknown]
